FAERS Safety Report 7840928-3 (Version None)
Quarter: 2011Q4

REPORT INFORMATION
  Report Type: 
  Country: None (occurrence: None)
  Receive Date: 20111021
  Receipt Date: 20111021
  Transmission Date: 20120403
  Serious: No
  Sender: FDA-Public Use
  Company Number: None

PATIENT
  Sex: Female
  Weight: 64.4108 kg

DRUGS (2)
  1. FORTEO [Suspect]
     Indication: OSTEOPOROSIS
     Dosage: 20 MCG SUBCUTANEOUSLY SHOT/DAILY
     Dates: start: 20110801
  2. FORTEO [Suspect]
     Indication: OSTEOPOROSIS
     Dosage: 20 MCG SUBCUTANEOUSLY SHOT/DAILY
     Dates: start: 20110701

REACTIONS (5)
  - DIZZINESS [None]
  - CONTUSION [None]
  - ASTHENIA [None]
  - HEADACHE [None]
  - COUGH [None]
